FAERS Safety Report 4356407-4 (Version None)
Quarter: 2004Q2

REPORT INFORMATION
  Report Type: 
  Country: None (occurrence: None)
  Receive Date: 20040506
  Receipt Date: 20040429
  Transmission Date: 20050107
  Serious: Yes (Death)
  Sender: FDA-Public Use
  Company Number: 200415749BWH

PATIENT
  Age: 69 Year
  Sex: Male
  Weight: 88.905 kg

DRUGS (5)
  1. LEVITRA [Suspect]
     Indication: ERECTILE DYSFUNCTION
     Dosage: 10 MG, PRN
     Dates: start: 20031121, end: 20040208
  2. PRILOSEC [Concomitant]
  3. CLARITIN [Concomitant]
  4. ASPIRIN [Concomitant]
  5. TRAVATAN [Concomitant]

REACTIONS (6)
  - BLOOD CHOLESTEROL INCREASED [None]
  - BRADYCARDIA [None]
  - LOSS OF CONSCIOUSNESS [None]
  - MYOCARDIAL INFARCTION [None]
  - PULSE ABSENT [None]
  - VENTRICULAR FIBRILLATION [None]
